FAERS Safety Report 17787721 (Version 2)
Quarter: 2020Q2

REPORT INFORMATION
  Report Type: Spontaneous
  Country: FR (occurrence: FR)
  Receive Date: 20200515
  Receipt Date: 20200518
  Transmission Date: 20200714
  Serious: Yes (Death, Other)
  Sender: FDA-Public Use
  Company Number: FR-BRISTOL-MYERS SQUIBB COMPANY-BMS-2020-038374

PATIENT
  Age: 84 Year
  Sex: Male
  Weight: 80 kg

DRUGS (3)
  1. ORENCIA [Suspect]
     Active Substance: ABATACEPT
     Indication: MYOCARDITIS
     Dosage: NON PRECISE
     Route: 042
     Dates: start: 20200102, end: 202002
  2. CELLCEPT [Suspect]
     Active Substance: MYCOPHENOLATE MOFETIL\MYCOPHENOLATE MOFETIL HYDROCHLORIDE
     Indication: MYOCARDITIS
     Dosage: 2 GRAM, QD
     Route: 048
     Dates: start: 20200113, end: 202002
  3. PREDNISONE. [Suspect]
     Active Substance: PREDNISONE
     Indication: MYOCARDITIS
     Dosage: 1000 MICROGRAM/KILOGRAM, QD
     Route: 048
     Dates: start: 202001, end: 202002

REACTIONS (5)
  - Altered state of consciousness [Fatal]
  - Septic shock [Fatal]
  - Off label use [Unknown]
  - Product use in unapproved indication [Unknown]
  - Acute respiratory distress syndrome [Fatal]

NARRATIVE: CASE EVENT DATE: 20200303
